FAERS Safety Report 8620403-9 (Version None)
Quarter: 2012Q3

REPORT INFORMATION
  Report Type: 
  Country: None (occurrence: None)
  Receive Date: 20120824
  Receipt Date: 20120816
  Transmission Date: 20120928
  Serious: Yes (Hospitalization)
  Sender: FDA-Public Use
  Company Number: JP-GLAXOSMITHKLINE-B0811409A

PATIENT
  Sex: Female
  Weight: 48 kg

DRUGS (1)
  1. LAMICTAL [Suspect]
     Indication: BIPOLAR DISORDER
     Dosage: 200MG TWICE PER DAY
     Route: 048
     Dates: start: 20110812, end: 20110920

REACTIONS (22)
  - RASH [None]
  - ALANINE AMINOTRANSFERASE INCREASED [None]
  - FACE OEDEMA [None]
  - LIP SWELLING [None]
  - LYMPHOCYTE MORPHOLOGY ABNORMAL [None]
  - LYMPHOCYTIC INFILTRATION [None]
  - PROTEINURIA [None]
  - DRUG RASH WITH EOSINOPHILIA AND SYSTEMIC SYMPTOMS [None]
  - PYREXIA [None]
  - ERYTHEMA [None]
  - HUMAN HERPESVIRUS 6 INFECTION [None]
  - LARYNGEAL OEDEMA [None]
  - GENERALISED ERYTHEMA [None]
  - MACULE [None]
  - LYMPHADENOPATHY [None]
  - HEPATIC FUNCTION ABNORMAL [None]
  - EPIDERMAL NECROSIS [None]
  - WHITE BLOOD CELL COUNT INCREASED [None]
  - SKIN DEGENERATIVE DISORDER [None]
  - EOSINOPHIL COUNT INCREASED [None]
  - LYMPHOCYTE STIMULATION TEST POSITIVE [None]
  - C-REACTIVE PROTEIN INCREASED [None]
